FAERS Safety Report 24072478 (Version 1)
Quarter: 2024Q3

REPORT INFORMATION
  Report Type: Spontaneous
  Country: US (occurrence: US)
  Receive Date: 20240710
  Receipt Date: 20240710
  Transmission Date: 20241016
  Serious: Yes (Other)
  Sender: GLAXOSMITHKLINE
  Company Number: US-GLAXOSMITHKLINE-US2024083236

PATIENT

DRUGS (1)
  1. BENLYSTA [Suspect]
     Active Substance: BELIMUMAB
     Indication: Product used for unknown indication
     Dosage: 200 MG, WE
     Route: 058

REACTIONS (5)
  - Diabetes mellitus [Not Recovered/Not Resolved]
  - Limb operation [Unknown]
  - Arthralgia [Recovered/Resolved]
  - Pain in extremity [Recovered/Resolved]
  - Product dose omission issue [Unknown]

NARRATIVE: CASE EVENT DATE: 20240301
